FAERS Safety Report 9720390 (Version 2)
Quarter: 2013Q4

REPORT INFORMATION
  Report Type: Spontaneous
  Country: FR (occurrence: FR)
  Receive Date: 20131129
  Receipt Date: 20131209
  Transmission Date: 20140711
  Serious: Yes (Other)
  Sender: FDA-Public Use
  Company Number: FR-009507513-1311FRA009612

PATIENT
  Age: 1 Month
  Sex: Female
  Weight: 4.4 kg

DRUGS (4)
  1. CELESTENE [Suspect]
     Indication: RHINITIS
     Dosage: 200 GTT, BID
     Route: 048
     Dates: start: 20131007, end: 20131009
  2. CELESTENE [Suspect]
     Indication: COUGH
  3. AUGMENTIN [Suspect]
     Indication: RHINITIS
     Dosage: 1 DF, TID
     Route: 048
     Dates: start: 20131007, end: 20131011
  4. AUGMENTIN [Suspect]
     Indication: COUGH

REACTIONS (5)
  - Diarrhoea [Recovered/Resolved]
  - Agitation [Recovered/Resolved]
  - Ventricular extrasystoles [Unknown]
  - Drug administration error [Recovered/Resolved]
  - Medication error [Recovered/Resolved]
